FAERS Safety Report 4599818-4 (Version None)
Quarter: 2005Q1

REPORT INFORMATION
  Report Type: 
  Country: None (occurrence: None)
  Receive Date: 20050304
  Receipt Date: 20050304
  Transmission Date: 20050727
  Serious: Yes (Other)
  Sender: FDA-Public Use
  Company Number: None

PATIENT
  Age: 38 Year
  Sex: Male
  Weight: 119.7496 kg

DRUGS (4)
  1. BUPROPION 75 MG [Suspect]
     Indication: EX-SMOKER
     Dosage: 1 DOSE ONLY
     Dates: start: 20050217
  2. METOPROLOL [Concomitant]
  3. PANTOPRAZOLE [Concomitant]
  4. VITAMINS [Concomitant]

REACTIONS (3)
  - BLOOD PRESSURE INCREASED [None]
  - HEADACHE [None]
  - WAXY FLEXIBILITY [None]
